FAERS Safety Report 19003740 (Version 2)
Quarter: 2021Q4

REPORT INFORMATION
  Report Type: Spontaneous
  Country: GB (occurrence: GB)
  Receive Date: 20210312
  Receipt Date: 20211101
  Transmission Date: 20220303
  Serious: Yes (Other)
  Sender: FDA-Public Use
  Company Number: None

PATIENT
  Age: 37 Year
  Sex: Female
  Weight: 78.46 kg

DRUGS (3)
  1. DOXYCYCLINE [Suspect]
     Active Substance: DOXYCYCLINE
     Indication: Bronchitis
     Dosage: 1 DF, 2X/DAY
     Route: 048
     Dates: start: 20180321, end: 20180321
  2. CIPROFLOXACIN [Suspect]
     Active Substance: CIPROFLOXACIN
     Indication: Lower respiratory tract infection
     Dosage: UNK (2 ON 1ST DAY THEN 1 A DAY FOR 5 DAYS)
     Route: 048
     Dates: start: 20180327, end: 20180327
  3. CIPROFLOXACIN [Suspect]
     Active Substance: CIPROFLOXACIN
     Indication: Lower respiratory tract infection

REACTIONS (6)
  - Hallucination [Unknown]
  - Urticaria [Unknown]
  - Pruritus [Unknown]
  - Blister [Unknown]
  - Dyspnoea [Unknown]
  - Dizziness [Unknown]
